FAERS Safety Report 8775288 (Version 1)
Quarter: 2012Q4

REPORT INFORMATION
  Report Type: 
  Country: BR (occurrence: BR)
  Receive Date: 20120910
  Receipt Date: 20120910
  Transmission Date: 20130627
  Serious: Yes (Hospitalization)
  Sender: FDA-Public Use
  Company Number: BR-PFIZER INC-2012011825

PATIENT
  Age: 60 Year
  Sex: Male
  Weight: 74 kg

DRUGS (5)
  1. SUTENT [Suspect]
     Indication: RENAL CANCER METASTATIC
     Dosage: 50 mg, 1x/day
     Route: 048
     Dates: start: 20120105, end: 2012
  2. SUTENT [Suspect]
     Indication: RENAL CANCER
  3. METFORMIN [Concomitant]
     Dosage: 850 mg, 1x/day
  4. ATENOLOL [Concomitant]
     Dosage: 20 mg, 1x/day
  5. SIMVASTATIN [Concomitant]
     Dosage: 40 mg, 1x/day

REACTIONS (4)
  - Asthenia [Unknown]
  - Decreased appetite [Unknown]
  - Urinary retention [Unknown]
  - Nausea [Unknown]
